FAERS Safety Report 25954983 (Version 1)
Quarter: 2025Q4

REPORT INFORMATION
  Report Type: Spontaneous
  Country: US (occurrence: US)
  Receive Date: 20251024
  Receipt Date: 20251024
  Transmission Date: 20260117
  Serious: No
  Sender: SUNOVION
  Company Number: US-SMPA-2025SPA012648

PATIENT
  Age: 67 Year
  Sex: Female

DRUGS (4)
  1. GEMTESA [Suspect]
     Active Substance: VIBEGRON
     Indication: Urinary incontinence
     Dosage: 75 MG
     Route: 048
  2. MYRBETRIQ [Suspect]
     Active Substance: MIRABEGRON
     Indication: Product used for unknown indication
     Dosage: UNK
  3. BACLOFEN [Concomitant]
     Active Substance: BACLOFEN
     Indication: Limb discomfort
     Dosage: UNK UNK, HS (TAKEN AT NIGHT)
  4. ROPINIROLE [Concomitant]
     Active Substance: ROPINIROLE
     Indication: Limb discomfort
     Dosage: UNK UNK, HS (TAKEN AT NIGHT)

REACTIONS (1)
  - Constipation [Not Recovered/Not Resolved]
